FAERS Safety Report 10360052 (Version 3)
Quarter: 2014Q4

REPORT INFORMATION
  Report Type: Spontaneous
  Country: US (occurrence: US)
  Receive Date: 20140804
  Receipt Date: 20141111
  Transmission Date: 20150528
  Serious: Yes (Hospitalization, Other)
  Sender: FDA-Public Use
  Company Number: US-BAYER-2014-113344

PATIENT
  Age: 28 Year
  Sex: Female
  Weight: 70.3 kg

DRUGS (2)
  1. PRILOSEC [Concomitant]
     Active Substance: OMEPRAZOLE MAGNESIUM
     Indication: DYSPEPSIA
     Route: 048
  2. MIRENA [Suspect]
     Active Substance: LEVONORGESTREL
     Indication: CONTRACEPTION
     Dosage: 20 MCG/24HR, CONT
     Route: 015
     Dates: start: 20110801, end: 20120727

REACTIONS (15)
  - Device dislocation [None]
  - Injury [None]
  - Depressed mood [None]
  - Genital haemorrhage [None]
  - Device issue [None]
  - Depression [None]
  - Abdominal pain [None]
  - Emotional distress [None]
  - Medical device discomfort [None]
  - Uterine perforation [None]
  - Anxiety [None]
  - Internal injury [None]
  - Device difficult to use [None]
  - Pelvic pain [None]
  - Fear [None]

NARRATIVE: CASE EVENT DATE: 201206
